FAERS Safety Report 6599295-8 (Version None)
Quarter: 2010Q1

REPORT INFORMATION
  Report Type: 
  Country: None (occurrence: None)
  Receive Date: 20100217
  Receipt Date: 20100208
  Transmission Date: 20100710
  Serious: Yes (Hospitalization)
  Sender: FDA-Public Use
  Company Number: 20108168

PATIENT
  Sex: Male

DRUGS (1)
  1. LIORESAL [Suspect]
     Indication: MUSCLE SPASTICITY
     Dosage: 104 MCG, DAILY, INTRATHECAL
     Route: 037

REACTIONS (3)
  - ATRIAL FIBRILLATION [None]
  - DEHYDRATION [None]
  - URINARY TRACT INFECTION [None]
